FAERS Safety Report 19084193 (Version 1)
Quarter: 2021Q2

REPORT INFORMATION
  Report Type: Spontaneous
  Country: FR (occurrence: FR)
  Receive Date: 20210401
  Receipt Date: 20210401
  Transmission Date: 20210717
  Serious: Yes (Death)
  Sender: FDA-Public Use
  Company Number: FR-TEVA-2021-FR-1895340

PATIENT
  Age: 48 Year
  Sex: Male

DRUGS (3)
  1. ALPRAZOLAM. [Suspect]
     Active Substance: ALPRAZOLAM
     Indication: DRUG ABUSE
     Dosage: UNSPECIFIED
     Route: 065
     Dates: end: 2021
  2. ZOPICLONE [Suspect]
     Active Substance: ZOPICLONE
     Indication: DRUG ABUSE
     Dosage: UNSPECIFIED
     Route: 065
     Dates: end: 2021
  3. METHADONE AP?HP [Suspect]
     Active Substance: METHADONE HYDROCHLORIDE
     Indication: DRUG ABUSE
     Dosage: UNSPECIFIED
     Route: 065
     Dates: end: 2021

REACTIONS (5)
  - Drug abuse [Fatal]
  - Arterial injury [Fatal]
  - Neck injury [Fatal]
  - Venous injury [Fatal]
  - Miosis [Fatal]

NARRATIVE: CASE EVENT DATE: 2021
